FAERS Safety Report 10076970 (Version 1)
Quarter: 2014Q2

REPORT INFORMATION
  Report Type: Spontaneous
  Country: DE (occurrence: DE)
  Receive Date: 20140414
  Receipt Date: 20140414
  Transmission Date: 20141212
  Serious: Yes (Other)
  Sender: FDA-Public Use
  Company Number: DE-ELI_LILLY_AND_COMPANY-DE201404001451

PATIENT
  Age: 88 Year
  Sex: Female
  Weight: 55 kg

DRUGS (6)
  1. OLANZAPINE [Suspect]
     Indication: INCREASED APPETITE
     Dosage: 10 MG, QD
     Route: 048
     Dates: start: 20140218, end: 20140312
  2. PROMETHAZINE [Concomitant]
     Indication: PRODUCT USED FOR UNKNOWN INDICATION
     Dosage: 30 MG, QD
     Route: 048
     Dates: start: 201307, end: 20140312
  3. CITALOPRAM [Concomitant]
     Indication: DEPRESSION
     Dosage: 40 MG, QD
     Dates: start: 2011
  4. DESLORATADINE [Concomitant]
     Indication: PRURITUS
     Dosage: 1 DF, UNKNOWN
     Route: 048
  5. EUTHYROX [Concomitant]
     Indication: HYPOTHYROIDISM
     Dosage: 75 UG, UNKNOWN
     Route: 048
     Dates: start: 2011
  6. LACTULOSE [Concomitant]
     Indication: CONSTIPATION
     Dosage: 10 ML, UNKNOWN
     Route: 048

REACTIONS (4)
  - Immobile [Recovering/Resolving]
  - Decreased appetite [Recovering/Resolving]
  - Parkinsonism [Recovering/Resolving]
  - Off label use [Unknown]
